FAERS Safety Report 7312900-3 (Version None)
Quarter: 2011Q1

REPORT INFORMATION
  Report Type: 
  Country: None (occurrence: None)
  Receive Date: 20110224
  Receipt Date: 20110210
  Transmission Date: 20110831
  Serious: Yes (Hospitalization)
  Sender: FDA-Public Use
  Company Number: DE-ROCHE-759014

PATIENT
  Sex: Female
  Weight: 75 kg

DRUGS (6)
  1. DOCETAXEL [Suspect]
     Dosage: 75 MG/M2 ON DAY 1 TREATMENT DELAYED
     Route: 042
     Dates: start: 20110126
  2. NAVOBAN [Concomitant]
     Indication: CHEMOTHERAPY
     Dates: start: 20110127, end: 20110129
  3. CAPECITABINE [Suspect]
     Dosage: 2X/DAY FROM DAY 1 TO 14 TREATMENT DELAYED
     Route: 048
     Dates: start: 20110126, end: 20110130
  4. EMEND [Concomitant]
     Dates: start: 20110126, end: 20110129
  5. DEXAMETHASONE [Concomitant]
     Indication: CHEMOTHERAPY
     Route: 048
     Dates: start: 20110125, end: 20110128
  6. TAVOR [Concomitant]
     Dates: start: 20110125

REACTIONS (1)
  - GASTRITIS EROSIVE [None]
